FAERS Safety Report 4377119-7 (Version None)
Quarter: 2004Q2

REPORT INFORMATION
  Report Type: 
  Country: None (occurrence: None)
  Receive Date: 20040615
  Receipt Date: 20030203
  Transmission Date: 20050107
  Serious: Yes (Other)
  Sender: FDA-Public Use
  Company Number: GB-BRISTOL-MYERS SQUIBB COMPANY-12176517

PATIENT
  Age: 77 Year
  Sex: Male
  Weight: 67 kg

DRUGS (19)
  1. HYDREA [Suspect]
     Indication: ESSENTIAL THROMBOCYTHAEMIA
     Route: 048
     Dates: start: 20010608, end: 20010720
  2. ALLOPURINOL [Concomitant]
  3. BUMETANIDE [Concomitant]
  4. FINASTERIDE [Concomitant]
  5. ONE-ALPHA [Concomitant]
     Route: 048
  6. ENSURE [Concomitant]
  7. LANSOPRAZOLE [Concomitant]
  8. CALCIUM ACETATE [Concomitant]
  9. FOLIC ACID [Concomitant]
  10. KETOVITE [Concomitant]
  11. NICORANDIL [Concomitant]
     Route: 048
  12. ATENOLOL [Concomitant]
     Route: 048
  13. OMEPRAZOLE [Concomitant]
     Route: 048
  14. ASPIRIN [Concomitant]
     Dosage: AS DIRECTED
  15. QUININE BISULPHATE [Concomitant]
     Dosage: AT NIGHT
     Route: 048
  16. AMOXICILLIN AND CLAVULANATE POTASSIUM [Concomitant]
     Dosage: 250 MG + 125 MG
     Route: 048
  17. PREDNISOLONE [Concomitant]
     Route: 048
  18. AMOXICILLIN [Concomitant]
     Route: 048
     Dates: start: 20020801
  19. FLOMAX [Concomitant]
     Route: 048
     Dates: start: 20020701

REACTIONS (7)
  - ALOPECIA [None]
  - ANOREXIA [None]
  - BACK PAIN [None]
  - DIZZINESS [None]
  - RENAL FAILURE ACUTE [None]
  - SKIN ATROPHY [None]
  - SKIN DISCOLOURATION [None]
